FAERS Safety Report 9701409 (Version 1)
Quarter: 2013Q4

REPORT INFORMATION
  Report Type: Spontaneous
  Country: US (occurrence: US)
  Receive Date: 20131121
  Receipt Date: 20131121
  Transmission Date: 20140711
  Serious: No
  Sender: FDA-Public Use
  Company Number: US-GILEAD-2008-0016868

PATIENT
  Sex: Female
  Weight: 45.36 kg

DRUGS (16)
  1. LETAIRIS [Suspect]
     Indication: PULMONARY ARTERIAL HYPERTENSION
     Route: 048
     Dates: start: 20080425
  2. HYDROCHLOROTHIAZIDE [Concomitant]
     Route: 048
  3. COUMADIN [Concomitant]
     Dosage: AS DIRECTED
     Route: 048
  4. VERAPAMIL [Concomitant]
     Route: 048
  5. FLECAINIDE ACETATE [Concomitant]
     Route: 048
  6. NITROGLYCERIN [Concomitant]
     Route: 048
  7. NITROGLYCERIN [Concomitant]
     Dosage: AS DIRECTED
     Route: 060
  8. COMBIVENT [Concomitant]
     Dosage: AS DIRECTED
     Route: 055
  9. TRUSOPT [Concomitant]
     Route: 047
  10. TRAVATAN [Concomitant]
     Route: 047
  11. RESTORIL [Concomitant]
     Dosage: HS
     Route: 048
  12. DAILY MULTIVITAMIN [Concomitant]
     Route: 048
  13. OXYGEN [Concomitant]
     Dosage: PRN
     Route: 055
  14. CALCIUM +D [Concomitant]
     Route: 048
  15. VITAMIN C [Concomitant]
     Route: 048
  16. VITAMIN B COMPLEX [Concomitant]
     Dosage: AS DIRECTED
     Route: 048

REACTIONS (2)
  - Asthenia [Unknown]
  - Local swelling [Unknown]
